FAERS Safety Report 14292401 (Version 7)
Quarter: 2018Q1

REPORT INFORMATION
  Report Type: Spontaneous
  Country: JP (occurrence: JP)
  Receive Date: 20171215
  Receipt Date: 20180209
  Transmission Date: 20180509
  Serious: Yes (Death, Hospitalization, Other)
  Sender: FDA-Public Use
  Company Number: JP-AMGEN-JPNSP2017185808

PATIENT
  Age: 55 Year
  Sex: Male
  Weight: 96 kg

DRUGS (14)
  1. BAYASPIRIN [Suspect]
     Active Substance: ASPIRIN
     Indication: ATRIAL FIBRILLATION
     Dosage: 100 MG, QD
     Route: 065
     Dates: start: 20151104, end: 20180109
  2. METGLUCO [Concomitant]
     Active Substance: METFORMIN HYDROCHLORIDE
     Indication: DIABETES MELLITUS
     Dosage: 500 MG, TID
     Dates: start: 20150406
  3. TRULICITY [Concomitant]
     Active Substance: DULAGLUTIDE
     Indication: DIABETES MELLITUS
     Dosage: 0.75 MG, QWK
     Route: 058
     Dates: start: 20160926
  4. PRAVASTATIN SODIUM. [Concomitant]
     Active Substance: PRAVASTATIN SODIUM
     Indication: HYPERCHOLESTEROLAEMIA
     Dosage: 10 MG, QD
     Dates: start: 20170529
  5. RYZODEG 70/30 [Concomitant]
     Active Substance: INSULIN ASPART\INSULIN DEGLUDEC
     Dosage: 7 DF, QD
  6. NEXIUM [Suspect]
     Active Substance: ESOMEPRAZOLE MAGNESIUM
     Indication: PROPHYLAXIS AGAINST GASTROINTESTINAL ULCER
     Dosage: 20 MG, QD
     Route: 065
     Dates: start: 20151104, end: 20180109
  7. ATELEC [Concomitant]
     Active Substance: CILNIDIPINE
     Indication: HYPERTENSION
     Dosage: 20 MG, QD
     Dates: start: 20150406
  8. FEBURIC [Concomitant]
     Active Substance: FEBUXOSTAT
     Indication: HYPERURICAEMIA
     Dosage: 10 MG, QD
     Dates: start: 20150406
  9. EPADEL-S [Concomitant]
     Active Substance: ICOSAPENT ETHYL
     Dosage: 2 DF, UNK
  10. SUREPOST [Concomitant]
     Active Substance: REPAGLINIDE
     Dosage: 0.5 MG, UNK
  11. BISOPROLOL FUMARATE. [Suspect]
     Active Substance: BISOPROLOL FUMARATE
     Indication: ATRIAL FIBRILLATION
     Dosage: 2.5 MG, QD
     Route: 065
     Dates: start: 20151104, end: 20180109
  12. ELIQUIS [Suspect]
     Active Substance: APIXABAN
     Indication: PROPHYLAXIS
     Dosage: 5 MG, QD
     Route: 065
     Dates: start: 20151104, end: 20180109
  13. REPATHA [Suspect]
     Active Substance: EVOLOCUMAB
     Indication: HYPERCHOLESTEROLAEMIA
     Dosage: 140 MG, Q2WK
     Route: 058
     Dates: start: 20170529, end: 20171129
  14. OLMETEC [Concomitant]
     Active Substance: OLMESARTAN MEDOXOMIL
     Indication: HYPERTENSION
     Dosage: 40 MG, QD
     Route: 065
     Dates: start: 20150406

REACTIONS (3)
  - Hypoxic-ischaemic encephalopathy [Fatal]
  - Cardio-respiratory arrest [Fatal]
  - Multiple organ dysfunction syndrome [Fatal]

NARRATIVE: CASE EVENT DATE: 20171129
